FAERS Safety Report 5076933-2 (Version None)
Quarter: 2006Q3

REPORT INFORMATION
  Report Type: 
  Country: None (occurrence: None)
  Receive Date: 20060810
  Receipt Date: 20060417
  Transmission Date: 20061208
  Serious: No
  Sender: FDA-Public Use
  Company Number: US-GLAXOSMITHKLINE-A0601957A

PATIENT
  Age: 6 Year
  Sex: Male

DRUGS (2)
  1. PAXIL [Suspect]
     Dosage: 1TSP PER DAY
     Route: 048
     Dates: start: 20050101, end: 20060401
  2. ABILIFY [Concomitant]

REACTIONS (2)
  - ABDOMINAL PAIN UPPER [None]
  - HEADACHE [None]
